FAERS Safety Report 13909892 (Version 1)
Quarter: 2017Q3

REPORT INFORMATION
  Report Type: Spontaneous
  Country: US (occurrence: US)
  Receive Date: 20170828
  Receipt Date: 20170828
  Transmission Date: 20171127
  Serious: Yes (Other)
  Sender: FDA-Public Use
  Company Number: US-AUROBINDO-AUR-APL-2017-39277

PATIENT
  Age: 29 Year
  Sex: Male

DRUGS (1)
  1. TRAZODONE HYDROCHLORIDE TABLETS USP 50 MG [Suspect]
     Active Substance: TRAZODONE HYDROCHLORIDE
     Indication: PRODUCT USED FOR UNKNOWN INDICATION
     Dosage: 25 TABLETS OF TRAZODONE 50MG
     Route: 065

REACTIONS (5)
  - Suicide attempt [Unknown]
  - Arteriospasm coronary [Unknown]
  - Toxicity to various agents [Unknown]
  - Intentional overdose [Unknown]
  - Acute myocardial infarction [Unknown]
